FAERS Safety Report 14922212 (Version 1)
Quarter: 2018Q2

REPORT INFORMATION
  Report Type: Spontaneous
  Country: US (occurrence: US)
  Receive Date: 20180522
  Receipt Date: 20180522
  Transmission Date: 20180711
  Serious: No
  Sender: FDA-Public Use
  Company Number: US-TEVA-2017-US-842563

PATIENT
  Sex: Male
  Weight: 75 kg

DRUGS (1)
  1. PENICILLIN G POTASSIUM. [Suspect]
     Active Substance: PENICILLIN G POTASSIUM
     Route: 065

REACTIONS (1)
  - Drug hypersensitivity [Unknown]
